FAERS Safety Report 4868895-5 (Version None)
Quarter: 2005Q4

REPORT INFORMATION
  Report Type: 
  Country: None (occurrence: None)
  Receive Date: 20051229
  Receipt Date: 20050926
  Transmission Date: 20060501
  Serious: Yes (Death, Hospitalization)
  Sender: FDA-Public Use
  Company Number: US-MERCK-0509USA04149

PATIENT
  Age: 65 Year
  Sex: Female
  Weight: 102 kg

DRUGS (8)
  1. VIOXX [Suspect]
     Indication: ARTHRITIS
     Route: 048
     Dates: start: 20030215, end: 20030613
  2. ENALAPRIL MALEATE [Concomitant]
     Indication: HYPERTENSION
     Route: 065
     Dates: start: 20030213, end: 20030513
  3. HYDROCHLOROTHIAZIDE [Concomitant]
     Indication: HYPERTENSION
     Route: 065
     Dates: start: 20030301, end: 20030401
  4. GLUCOPHAGE [Concomitant]
     Indication: DIABETES MELLITUS
     Route: 065
     Dates: start: 20010801, end: 20030501
  5. GLIPIZIDE [Concomitant]
     Indication: DIABETES MELLITUS
     Route: 065
     Dates: start: 20030201, end: 20030501
  6. CYCLOBENZAPRINE HYDROCHLORIDE [Concomitant]
     Indication: PAIN
     Route: 065
     Dates: start: 20030215, end: 20030326
  7. PLAVIX [Concomitant]
     Indication: PROPHYLAXIS
     Route: 065
     Dates: start: 20020701, end: 20030501
  8. ACETAMINOPHEN AND CODEINE [Concomitant]
     Indication: PAIN
     Route: 065
     Dates: start: 20021101, end: 20030101

REACTIONS (15)
  - ATELECTASIS [None]
  - BLOOD CHOLESTEROL INCREASED [None]
  - BRONCHITIS [None]
  - CEREBROVASCULAR ACCIDENT [None]
  - CONSTIPATION [None]
  - DEATH [None]
  - HYPERCHLORAEMIA [None]
  - HYPONATRAEMIA [None]
  - INFECTION [None]
  - PNEUMONIA [None]
  - PSEUDOMONAS INFECTION [None]
  - STAPHYLOCOCCAL INFECTION [None]
  - STENOTROPHOMONAS INFECTION [None]
  - TACHYCARDIA [None]
  - URINARY TRACT INFECTION [None]
